FAERS Safety Report 8976797 (Version 1)
Quarter: 2012Q4

REPORT INFORMATION
  Report Type: 
  Country: JP (occurrence: JP)
  Receive Date: 20121220
  Receipt Date: 20121220
  Transmission Date: 20130627
  Serious: Yes (Other)
  Sender: FDA-Public Use
  Company Number: JP-ASTRAZENECA-2012SE83038

PATIENT
  Age: 36 Year
  Sex: Female

DRUGS (4)
  1. SYMBICORT TURBUHALER [Suspect]
     Indication: ASTHMA
     Dosage: 2 DOSAGE FORM TWO TIMES A DAY
     Route: 055
     Dates: start: 20120501, end: 20120611
  2. CRAVIT [Concomitant]
     Indication: BRONCHITIS
     Route: 048
     Dates: start: 20120501, end: 20120504
  3. MUCODYNE [Concomitant]
     Indication: BRONCHITIS
     Route: 048
     Dates: start: 20120501, end: 20120510
  4. EMPYNASE P [Concomitant]
     Indication: BRONCHITIS
     Route: 048
     Dates: start: 20120501, end: 20120510

REACTIONS (1)
  - Dyspnoea [Recovered/Resolved]
